FAERS Safety Report 6166981-3 (Version None)
Quarter: 2009Q2

REPORT INFORMATION
  Report Type: 
  Country: None (occurrence: None)
  Receive Date: 20090423
  Receipt Date: 20090423
  Transmission Date: 20091009
  Serious: Yes (Hospitalization)
  Sender: FDA-Public Use
  Company Number: None

PATIENT
  Age: 16 Year

DRUGS (3)
  1. BUPROPION HCL [Suspect]
     Indication: SELF-MEDICATION
     Dosage: PO
     Route: 048
     Dates: start: 20080317, end: 20080319
  2. HYDROCODONE BITARTRATE + ACETAMINOPHEN [Suspect]
     Indication: SELF-MEDICATION
     Dosage: PO
     Route: 048
  3. CLINDAMYCIN HCL [Concomitant]

REACTIONS (11)
  - ACCIDENTAL EXPOSURE [None]
  - DELIRIUM [None]
  - DRUG NAME CONFUSION [None]
  - ENCEPHALOPATHY [None]
  - GRAND MAL CONVULSION [None]
  - HALLUCINATION, VISUAL [None]
  - MOOD SWINGS [None]
  - OPIATES POSITIVE [None]
  - SELF-MEDICATION [None]
  - SPEECH DISORDER [None]
  - WRONG DRUG ADMINISTERED [None]
